FAERS Safety Report 8936748 (Version 2)
Quarter: 2014Q3

REPORT INFORMATION
  Report Type: Report from Study
  Country: US (occurrence: US)
  Receive Date: 20121130
  Receipt Date: 20140828
  Transmission Date: 20150326
  Serious: Yes (Death)
  Sender: FDA-Public Use
  Company Number: US-ROCHE-1126194

PATIENT
  Sex: Female
  Weight: 71 kg

DRUGS (6)
  1. AVASTIN [Suspect]
     Active Substance: BEVACIZUMAB
     Indication: BREAST CANCER METASTATIC
     Route: 042
  2. XELODA [Suspect]
     Active Substance: CAPECITABINE
     Indication: BREAST CANCER FEMALE
     Route: 065
  3. ZOMETA [Concomitant]
     Active Substance: ZOLEDRONIC ACID
  4. AVASTIN [Suspect]
     Active Substance: BEVACIZUMAB
     Indication: BREAST CANCER FEMALE
     Route: 042
     Dates: start: 20050824, end: 20060623
  5. ABRAXANE [Concomitant]
     Active Substance: PACLITAXEL
  6. NAVELBINE [Concomitant]
     Active Substance: VINORELBINE TARTRATE
     Route: 065
     Dates: start: 20060714

REACTIONS (6)
  - Off label use [Unknown]
  - Disease progression [Unknown]
  - Tenderness [Unknown]
  - Abdominal distension [Unknown]
  - Tumour marker increased [Unknown]
  - Breast cancer metastatic [Fatal]
